FAERS Safety Report 6732920-7 (Version None)
Quarter: 2010Q2

REPORT INFORMATION
  Report Type: 
  Country: None (occurrence: None)
  Receive Date: 20100517
  Receipt Date: 20100513
  Transmission Date: 20101027
  Serious: Yes (Hospitalization)
  Sender: FDA-Public Use
  Company Number: GP-10-04-0028

PATIENT
  Age: 7 Year
  Sex: Female

DRUGS (1)
  1. ONDANSETRON       ORALLY DISINTEGRATING TABLETS [Suspect]
     Indication: NAUSEA
     Dosage: 4MG, T.I.D., P.O.
     Route: 048
     Dates: start: 20100429, end: 20100430

REACTIONS (6)
  - ABDOMINAL PAIN UPPER [None]
  - CHEST PAIN [None]
  - DEHYDRATION [None]
  - DYSPNOEA [None]
  - NAUSEA [None]
  - VOMITING [None]
